FAERS Safety Report 11762486 (Version 2)
Quarter: 2016Q2

REPORT INFORMATION
  Report Type: Spontaneous
  Country: FR (occurrence: FR)
  Receive Date: 20151120
  Receipt Date: 20160516
  Transmission Date: 20160815
  Serious: Yes (Disabling, Congenital Anomaly)
  Sender: FDA-Public Use
  Company Number: FR-ABBVIE-15P-056-1505624-00

PATIENT
  Sex: Male

DRUGS (1)
  1. DEPAKINE [Suspect]
     Active Substance: VALPROATE SODIUM
     Indication: MATERNAL EXPOSURE TIMING UNSPECIFIED
     Route: 064
     Dates: end: 2001

REACTIONS (6)
  - Foetal exposure during pregnancy [Unknown]
  - Hypokinesia [Unknown]
  - Ear disorder [Unknown]
  - Hypotonia [Unknown]
  - Dysplasia [Unknown]
  - Hypoacusis [Unknown]
